FAERS Safety Report 7564848-7 (Version None)
Quarter: 2011Q2

REPORT INFORMATION
  Report Type: 
  Country: None (occurrence: None)
  Receive Date: 20110622
  Receipt Date: 20110106
  Transmission Date: 20111010
  Serious: Yes (Other)
  Sender: FDA-Public Use
  Company Number: US-MYLANLABS-2011S1000122

PATIENT
  Age: 17 Year
  Sex: Male

DRUGS (3)
  1. CLOZAPINE [Suspect]
     Route: 048
     Dates: start: 20110104
  2. DEPAKOTE [Concomitant]
     Dosage: 500MG BID, 125MG HS
     Route: 048
  3. CLOZAPINE [Suspect]
     Indication: SCHIZOPHRENIA
     Route: 048
     Dates: end: 20101227

REACTIONS (1)
  - GRANULOCYTOPENIA [None]
